FAERS Safety Report 8954865 (Version 1)
Quarter: 2012Q4

REPORT INFORMATION
  Report Type: Report from Study
  Country: AU (occurrence: AU)
  Receive Date: 20121207
  Receipt Date: 20121207
  Transmission Date: 20130627
  Serious: Yes (Life-Threatening, Hospitalization, Other)
  Sender: FDA-Public Use
  Company Number: AU-ASTRAZENECA-2012SE90970

PATIENT
  Age: 10461 Day
  Sex: Female

DRUGS (7)
  1. SEROQUEL XR [Suspect]
     Indication: PSYCHOTIC DISORDER
     Dosage: 50-100 MG DAILY STARTED PRE-PREGNANCY
     Route: 048
  2. CHLORPROMAZINE [Suspect]
     Indication: ANTIPSYCHOTIC DRUG LEVEL
     Dosage: INITIATED PRE-PREGNANCY AND STOPPED AT 28/40 WEEKS
     Route: 048
  3. HALOPERIDOL [Suspect]
     Indication: ANTIPSYCHOTIC DRUG LEVEL
     Dosage: 0.6-2 MG DAILY INITIATED AT 8/40 WEEKS AND STOPPED AT 12/40 WEEKS
     Route: 048
  4. LITHIUM [Suspect]
     Indication: MOOD ALTERED
     Dosage: INITIATED AT 28/40 WEEKS AND STOPPED BEFORE 24 HRS BEFORE BIRTH
     Route: 048
  5. PROTOPHANE/HUMALOG [Concomitant]
     Indication: GESTATIONAL DIABETES
     Dosage: INITIATED AT 18/40 WEEKS AND STOPPED AT BIRTH
     Route: 048
  6. BLACKMORES P AND BF [Concomitant]
     Indication: SUPPLEMENTATION THERAPY
     Dosage: INITIATED AT FIRST TRIMESTER AND STOPPED AT BIRTH
     Route: 048
  7. VITAMIN D [Concomitant]
     Indication: VITAMIN SUPPLEMENTATION
     Dosage: INITIATED AT FIRST TRIMESTER AND STOPPED AT BIRTH
     Route: 048

REACTIONS (2)
  - Gestational diabetes [Recovered/Resolved]
  - Exposure during pregnancy [Recovered/Resolved]
